FAERS Safety Report 4302844-3 (Version None)
Quarter: 2004Q1

REPORT INFORMATION
  Report Type: 
  Country: None (occurrence: None)
  Receive Date: 20040220
  Receipt Date: 20040204
  Transmission Date: 20041129
  Serious: Yes (Other)
  Sender: FDA-Public Use
  Company Number: A-US2004-05095

PATIENT
  Age: 61 Year
  Sex: Female

DRUGS (7)
  1. TRACLEER [Suspect]
     Indication: PULMONARY HYPERTENSION
     Dosage: MG, ORAL
     Route: 048
     Dates: start: 20031001
  2. FLOLAN [Concomitant]
  3. WARFARIN SODIUM [Concomitant]
  4. IMURAN [Concomitant]
  5. PREDNISONE [Concomitant]
  6. PROTONIX [Concomitant]
  7. VICODIN [Concomitant]

REACTIONS (1)
  - HYPERTRIGLYCERIDAEMIA [None]
